FAERS Safety Report 15316022 (Version 2)
Quarter: 2018Q4

REPORT INFORMATION
  Report Type: Report from Study
  Country: CA (occurrence: CA)
  Receive Date: 20180824
  Receipt Date: 20181001
  Transmission Date: 20190204
  Serious: Yes (Other)
  Sender: FDA-Public Use
  Company Number: CA-HLSUS-2018-CA-001265

PATIENT
  Age: 63 Year
  Sex: Female
  Weight: 106.36 kg

DRUGS (18)
  1. VENTOLIN HFA [Concomitant]
     Active Substance: ALBUTEROL SULFATE
     Dosage: 2 INHALATIONS Q4 HRS PRN
  2. TOLTERODINE ER [Concomitant]
     Dosage: 1 CAPSULE AT SUPER DAILY X30 DAYS
  3. CELEBREX [Concomitant]
     Active Substance: CELECOXIB
     Dosage: 1 TABLET DAILY PRN X30 DAYS
  4. VENLAFAXINE XR [Concomitant]
     Active Substance: VENLAFAXINE HYDROCHLORIDE
     Dosage: TABLETS IN THE MORNING
  5. LAMISIL 1% [Concomitant]
     Active Substance: TERBINAFINE
     Dosage: APPLY TWICE DAILY UNTIL
     Route: 061
  6. TRAZODONE [Concomitant]
     Active Substance: TRAZODONE HYDROCHLORIDE
     Dosage: 1.5 TABS QHS FOR 1 MONTH
  7. AZITHROMYCIN ANHYDROUS. [Concomitant]
     Active Substance: AZITHROMYCIN ANHYDROUS
  8. QUETIAPINE XR 50MG [Concomitant]
     Dosage: 2 TABS IN THE PM X30 DAYS
  9. OXAZEPAM 15MG [Concomitant]
     Dosage: 1 TAB PRN + 1 TAB QHS X30 DAYS
  10. LOPROC [Concomitant]
     Dosage: APPLY TWICE DAILY
  11. QUETIAPINE. [Concomitant]
     Active Substance: QUETIAPINE
     Dosage: 2 TABS IN THE PM X30 DAYS
  12. BISACODYL. [Concomitant]
     Active Substance: BISACODYL
     Dosage: TABS IN THE AM AND 2 TABLETS IN THE PM X1 MONTH
  13. CLOZARIL [Suspect]
     Active Substance: CLOZAPINE
     Indication: PSYCHOTIC DISORDER
     Dosage: 312.5 MG HS AND 12.5 MG
     Route: 048
     Dates: start: 20150105
  14. SYMBICORT [Concomitant]
     Active Substance: BUDESONIDE\FORMOTEROL FUMARATE DIHYDRATE
     Dosage: INHALE POWDER FOR 1 - 2 MINS BID MAX 4X A DAY
  15. DEXILANT [Concomitant]
     Active Substance: DEXLANSOPRAZOLE
     Dosage: 1 CAPSULE DAILY(MORNING) X30 DAYS
  16. DOCUSATE SODIUM. [Concomitant]
     Active Substance: DOCUSATE SODIUM
     Dosage: 2 CAPSULE QHS X1 MONTH
  17. BIAXIN [Concomitant]
     Active Substance: CLARITHROMYCIN
     Dosage: 1 TAB BID X 7 DAYS
  18. ZITHROMAX [Concomitant]
     Active Substance: AZITHROMYCIN DIHYDRATE
     Dosage: 2 TABS OF 250MG ON DAY 1 THEN 1 TAB DAILY X4 DAYS

REACTIONS (2)
  - Anaemia [Unknown]
  - Renal neoplasm [Unknown]

NARRATIVE: CASE EVENT DATE: 20180914
